FAERS Safety Report 5095238-7 (Version None)
Quarter: 2006Q3

REPORT INFORMATION
  Report Type: 
  Country: None (occurrence: None)
  Receive Date: 20060901
  Receipt Date: 20060824
  Transmission Date: 20061208
  Serious: Yes (Other)
  Sender: FDA-Public Use
  Company Number: US-JNJFOC-20060805843

PATIENT
  Sex: Female

DRUGS (1)
  1. ULTRAM SR [Suspect]
     Indication: OSTEOARTHRITIS
     Route: 048

REACTIONS (1)
  - HALLUCINATION [None]
